FAERS Safety Report 15939230 (Version 1)
Quarter: 2019Q1

REPORT INFORMATION
  Report Type: Report from Study
  Country: None (occurrence: BR)
  Receive Date: 20190208
  Receipt Date: 20190208
  Transmission Date: 20190417
  Serious: Yes (Death, Hospitalization)
  Sender: FDA-Public Use
  Company Number: BR-ABBVIE-19K-020-2657253-00

PATIENT
  Age: 53 Year
  Sex: Male
  Weight: 72 kg

DRUGS (2)
  1. VESANOID [Concomitant]
     Active Substance: TRETINOIN
     Indication: LEUKAEMIA
     Dosage: 2 DOSES
  2. HUMIRA [Suspect]
     Active Substance: ADALIMUMAB
     Indication: ANKYLOSING SPONDYLITIS
     Route: 058
     Dates: start: 20120101

REACTIONS (5)
  - Asthenia [Unknown]
  - Leukaemia [Fatal]
  - Headache [Unknown]
  - Skin discolouration [Unknown]
  - Pain in extremity [Unknown]

NARRATIVE: CASE EVENT DATE: 20190118
